FAERS Safety Report 9519439 (Version 3)
Quarter: 2013Q4

REPORT INFORMATION
  Report Type: Spontaneous
  Country: US (occurrence: US)
  Receive Date: 20130912
  Receipt Date: 20131009
  Transmission Date: 20140711
  Serious: Yes (Other)
  Sender: FDA-Public Use
  Company Number: US-GLAXOSMITHKLINE-A1041224A

PATIENT
  Age: 42 Year
  Sex: Female

DRUGS (5)
  1. ADVAIR [Suspect]
     Indication: WHEEZING
     Route: 055
     Dates: start: 20121123
  2. VENTOLIN [Suspect]
     Indication: WHEEZING
     Dosage: 90MCG UNKNOWN
     Route: 055
     Dates: start: 20121123
  3. METHYLPREDNISOLONE [Concomitant]
  4. FLUTICASONE PROPIONATE [Concomitant]
  5. PRO-AIR [Concomitant]

REACTIONS (4)
  - Limb operation [Unknown]
  - Joint surgery [Unknown]
  - Cough [Not Recovered/Not Resolved]
  - Wheezing [Not Recovered/Not Resolved]
